FAERS Safety Report 4714867-0 (Version None)
Quarter: 2005Q3

REPORT INFORMATION
  Report Type: 
  Country: None (occurrence: None)
  Receive Date: 20050713
  Receipt Date: 20050630
  Transmission Date: 20060218
  Serious: Yes (Hospitalization, Other)
  Sender: FDA-Public Use
  Company Number: HQWYE951501JUL05

PATIENT
  Age: 94 Year
  Sex: Female

DRUGS (12)
  1. CORDARONE [Suspect]
     Indication: ARRHYTHMIA
     Dosage: 200 MG 1X PER 1 DAY ORAL
     Route: 048
     Dates: start: 20050416
  2. FRAXODI (NADROPARIN CALCIUM, ) [Suspect]
     Dosage: 1 UNIT 1X PER 1 DAY SC
     Route: 058
     Dates: start: 20050408, end: 20050524
  3. SINTROM [Suspect]
     Dosage: SEE IMAGE
     Route: 048
     Dates: start: 20050501, end: 20050516
  4. SINTROM [Suspect]
     Dosage: SEE IMAGE
     Route: 048
     Dates: start: 20050517, end: 20050524
  5. LORAZEPAM [Concomitant]
  6. XANAX [Concomitant]
  7. CALCIUM (CALCIUM) [Concomitant]
  8. COLECALCIFEROL (COLECALCIFEROL) [Concomitant]
  9. STABLON (TIANEPTINE) [Concomitant]
  10. SODIUM PHOSPHATE MONOBASIC (SODIUM PHOSPHATE MONOBASIC) [Concomitant]
  11. MOTILIUM [Concomitant]
  12. RAMIPRIL [Concomitant]

REACTIONS (9)
  - ACTIVATED PARTIAL THROMBOPLASTIN TIME PROLONGED [None]
  - BLOOD PRESSURE DECREASED [None]
  - DRUG INTERACTION [None]
  - HAEMATOMA [None]
  - HAEMOGLOBIN DECREASED [None]
  - HYPOVOLAEMIC SHOCK [None]
  - INTERNATIONAL NORMALISED RATIO INCREASED [None]
  - MALAISE [None]
  - PAIN IN EXTREMITY [None]
